FAERS Safety Report 6082230-9 (Version None)
Quarter: 2009Q1

REPORT INFORMATION
  Report Type: 
  Country: None (occurrence: None)
  Receive Date: 20090121
  Receipt Date: 20080926
  Transmission Date: 20090719
  Serious: Yes (Other)
  Sender: FDA-Public Use
  Company Number: US-WYE-H06173408

PATIENT
  Age: 84 Year
  Sex: Female
  Weight: 47.67 kg

DRUGS (6)
  1. ADVIL PM [Suspect]
     Indication: BACK PAIN
     Dosage: 1 LIQUI-GEL BEFORE BED, ORAL
     Route: 048
     Dates: start: 20080801, end: 20080901
  2. ADVIL PM [Suspect]
     Indication: INSOMNIA
     Dosage: 1 LIQUI-GEL BEFORE BED, ORAL
     Route: 048
     Dates: start: 20080801, end: 20080901
  3. PLENDIL [Concomitant]
  4. DIOVAN [Concomitant]
  5. SYNTHROID [Concomitant]
  6. PREDNISONE TAB [Concomitant]

REACTIONS (2)
  - ROAD TRAFFIC ACCIDENT [None]
  - SOMNOLENCE [None]
